FAERS Safety Report 5295687-8 (Version None)
Quarter: 2007Q2

REPORT INFORMATION
  Report Type: 
  Country: None (occurrence: None)
  Receive Date: 20070410
  Receipt Date: 20070410
  Transmission Date: 20071010
  Serious: Yes (Life-Threatening, Hospitalization, Disabling, Congenital Anomaly, Other)
  Sender: FDA-Public Use
  Company Number: None

PATIENT
  Sex: Female
  Weight: 90.7194 kg

DRUGS (2)
  1. ZOFRAN [Suspect]
     Indication: VOMITING IN PREGNANCY
     Dosage: DISSOLVE ONE TABLET      BETWEEN 2-6 TIMES   PO
     Route: 048
     Dates: start: 20041212, end: 20050313
  2. ZOFRAN [Suspect]
     Indication: VOMITING IN PREGNANCY
     Dosage: DISSOLVE ONE TABLET      BETWEEN 2-6 TIMES   PO
     Route: 048
     Dates: start: 20050927, end: 20060620

REACTIONS (17)
  - BORDERLINE PERSONALITY DISORDER [None]
  - BRONCHOPULMONARY DYSPLASIA [None]
  - CONGENITAL TRICUSPID VALVE ATRESIA [None]
  - DEHYDRATION [None]
  - DEVELOPMENTAL DELAY [None]
  - DRUG EXPOSURE DURING PREGNANCY [None]
  - HEART DISEASE CONGENITAL [None]
  - MYOPATHY [None]
  - NERVOUS SYSTEM DISORDER [None]
  - NYSTAGMUS [None]
  - PLACENTAL TRANSFUSION SYNDROME [None]
  - PREMATURE BABY [None]
  - RETINOPATHY OF PREMATURITY [None]
  - SENSORY DISTURBANCE [None]
  - VOMITING [None]
  - WEIGHT DECREASED [None]
  - WEIGHT GAIN POOR [None]
